FAERS Safety Report 20733107 (Version 1)
Quarter: 2022Q2

REPORT INFORMATION
  Report Type: Report from Study
  Country: US (occurrence: US)
  Receive Date: 20220421
  Receipt Date: 20220421
  Transmission Date: 20220721
  Serious: Yes (Hospitalization)
  Sender: FDA-Public Use
  Company Number: US-BRISTOL-MYERS SQUIBB COMPANY-2022-018478

PATIENT
  Age: 52 Year
  Sex: Female

DRUGS (1)
  1. OZANIMOD [Suspect]
     Active Substance: OZANIMOD
     Indication: Multiple sclerosis
     Dosage: DAILY
     Route: 048
     Dates: start: 20200717

REACTIONS (1)
  - Tachycardia [Unknown]

NARRATIVE: CASE EVENT DATE: 20220322
